FAERS Safety Report 8348047-7 (Version None)
Quarter: 2012Q2

REPORT INFORMATION
  Report Type: 
  Country: None (occurrence: None)
  Receive Date: 20120509
  Receipt Date: 20120504
  Transmission Date: 20120825
  Serious: No
  Sender: FDA-Public Use
  Company Number: US-PFIZER INC-2011099066

PATIENT
  Sex: Female
  Weight: 59 kg

DRUGS (1)
  1. ESTRING [Suspect]
     Indication: VULVOVAGINAL DRYNESS
     Dosage: 2 MG, EVERY THREE MONTHS
     Route: 067
     Dates: start: 20100101

REACTIONS (3)
  - DRUG INEFFECTIVE [None]
  - SURGERY [None]
  - PAIN [None]
